FAERS Safety Report 10716645 (Version 4)
Quarter: 2015Q3

REPORT INFORMATION
  Report Type: Spontaneous
  Country: US (occurrence: US)
  Receive Date: 20150116
  Receipt Date: 20150819
  Transmission Date: 20151125
  Serious: Yes (Other)
  Sender: FDA-Public Use
  Company Number: US-BAYER-2015-006445

PATIENT
  Age: 25 Year
  Sex: Female
  Weight: 63.49 kg

DRUGS (3)
  1. MIRENA [Suspect]
     Active Substance: LEVONORGESTREL
     Indication: CONTRACEPTION
     Dosage: 20 MCG/24HR, CONT
     Route: 015
     Dates: start: 20110613, end: 20121116
  2. MIRENA [Suspect]
     Active Substance: LEVONORGESTREL
     Indication: MENORRHAGIA
  3. NORPLANT [Concomitant]
     Active Substance: LEVONORGESTREL

REACTIONS (9)
  - Anxiety [None]
  - Embedded device [None]
  - Injury [None]
  - Pregnancy with contraceptive device [None]
  - Depression [None]
  - Medical device pain [None]
  - Genital haemorrhage [None]
  - Pelvic pain [None]
  - Drug ineffective [None]

NARRATIVE: CASE EVENT DATE: 201109
